FAERS Safety Report 14978250 (Version 2)
Quarter: 2018Q3

REPORT INFORMATION
  Report Type: Spontaneous
  Country: DE (occurrence: DE)
  Receive Date: 20180606
  Receipt Date: 20180703
  Transmission Date: 20181010
  Serious: Yes (Death, Hospitalization, Other)
  Sender: FDA-Public Use
  Company Number: DE-WEST-WARD PHARMACEUTICALS CORP.-DE-H14001-18-04568

PATIENT
  Age: 58 Year
  Sex: Male
  Weight: 103.8 kg

DRUGS (22)
  1. BEVACIZUMAB. [Suspect]
     Active Substance: BEVACIZUMAB
     Route: 042
     Dates: start: 20160421
  2. 5?FLUOROURACIL [Concomitant]
     Active Substance: FLUOROURACIL
     Dosage: DAY1, DAY8 AND DAY 22 OF CYCLE
     Route: 041
     Dates: start: 20160128, end: 20160212
  3. 5?FLUOROURACIL [Concomitant]
     Active Substance: FLUOROURACIL
     Dosage: DAY1, DAY8 AND DAY 22 OF CYCLE
     Route: 041
     Dates: start: 20160218, end: 20160219
  4. FOLINIC ACID [Concomitant]
     Active Substance: LEUCOVORIN
     Dosage: ON DAY 1 AND DAY 8 OF EACH CYCLE (22 DAYS CYCLE)
     Route: 042
     Dates: start: 20160512
  5. GRANISETRON [Concomitant]
     Active Substance: GRANISETRON
     Indication: PROPHYLAXIS
     Route: 048
     Dates: start: 20150729
  6. 5?FLUOROURACIL [Concomitant]
     Active Substance: FLUOROURACIL
     Dosage: DAY1, DAY8 AND DAY 22 OF CYCLE
     Route: 041
     Dates: start: 20160512
  7. FOLINIC ACID [Concomitant]
     Active Substance: LEUCOVORIN
     Indication: COLORECTAL CANCER
     Route: 042
     Dates: start: 20150729, end: 20150729
  8. RAMIPRIL. [Concomitant]
     Active Substance: RAMIPRIL
     Indication: HYPERTENSION
     Route: 048
  9. CAPECITABINE. [Suspect]
     Active Substance: CAPECITABINE
     Indication: COLORECTAL CANCER
     Dosage: 2 TIMES PER DAY FOR 14 DAYS, 7 DAYS BREAK
     Route: 048
     Dates: start: 20150729, end: 20151104
  10. 5?FLUOROURACIL [Concomitant]
     Active Substance: FLUOROURACIL
     Indication: COLORECTAL CANCER
     Dosage: DAY1, DAY8 AND DAY 22 OF CYCLE
     Route: 042
     Dates: start: 20151118
  11. 5?FLUOROURACIL [Concomitant]
     Active Substance: FLUOROURACIL
     Dosage: DAY1, DAY8 AND DAY 22 OF CYCLE
     Route: 042
     Dates: start: 20151125
  12. 5?FLUOROURACIL [Concomitant]
     Active Substance: FLUOROURACIL
     Dosage: DAY1, DAY8 AND DAY 22 OF CYCLE
     Route: 042
     Dates: start: 20151111, end: 20151125
  13. IRINOTECAN [Concomitant]
     Active Substance: IRINOTECAN
     Indication: COLORECTAL CANCER
     Dosage: ON DAY 1 AND DAY 8 OF EACH CYCLE (22 DAYS CYCLE)
     Route: 042
     Dates: start: 20150729, end: 20150805
  14. BEVACIZUMAB. [Suspect]
     Active Substance: BEVACIZUMAB
     Indication: COLORECTAL CANCER METASTATIC
     Route: 042
     Dates: start: 20150729
  15. BEVACIZUMAB. [Suspect]
     Active Substance: BEVACIZUMAB
     Dosage: ()
     Route: 065
     Dates: start: 20161110
  16. BEVACIZUMAB. [Suspect]
     Active Substance: BEVACIZUMAB
     Route: 042
     Dates: start: 20151125
  17. BEVACIZUMAB. [Suspect]
     Active Substance: BEVACIZUMAB
     Route: 042
     Dates: start: 20160211
  18. TAVOR (LORAZEPAM) [Concomitant]
     Active Substance: LORAZEPAM
     Indication: PRODUCT USED FOR UNKNOWN INDICATION
     Dosage: ONCE
     Route: 048
     Dates: start: 20151111
  19. 5?FLUOROURACIL [Concomitant]
     Active Substance: FLUOROURACIL
     Dosage: DAY1, DAY8 AND DAY 22 OF CYCLE
     Route: 041
     Dates: start: 20160310, end: 20160429
  20. FOLINIC ACID [Concomitant]
     Active Substance: LEUCOVORIN
     Route: 042
     Dates: start: 20151111
  21. BISOPROLOL [Concomitant]
     Active Substance: BISOPROLOL
     Indication: HYPERTENSION
     Route: 048
  22. PANTOPRAZOL [Concomitant]
     Active Substance: PANTOPRAZOLE SODIUM
     Indication: PROPHYLAXIS
     Route: 048

REACTIONS (14)
  - Oedema [Recovered/Resolved]
  - Sleep disorder [Recovered/Resolved]
  - Polyneuropathy [Unknown]
  - Colitis [Recovered/Resolved]
  - Nasopharyngitis [Recovered/Resolved]
  - Diarrhoea [Recovered/Resolved]
  - Paraesthesia [Recovered/Resolved]
  - Diplopia [Recovered/Resolved]
  - Death [Fatal]
  - Epistaxis [Recovered/Resolved]
  - Urinary tract infection [Recovered/Resolved]
  - Hepatitis A [Recovered/Resolved]
  - Nausea [Recovered/Resolved]
  - Gastrointestinal disorder [Not Recovered/Not Resolved]

NARRATIVE: CASE EVENT DATE: 20150805
